FAERS Safety Report 4687664-2 (Version None)
Quarter: 2005Q2

REPORT INFORMATION
  Report Type: 
  Country: None (occurrence: None)
  Receive Date: 20050610
  Receipt Date: 20050502
  Transmission Date: 20051028
  Serious: Yes (Death, Other)
  Sender: FDA-Public Use
  Company Number: ZA-BOEHRINGER INGELHEIM PHARMACEUTICALS, INC.-2005-DE-01648GD

PATIENT

DRUGS (2)
  1. TRIOMUNE [Suspect]
     Indication: ACQUIRED IMMUNODEFICIENCY SYNDROME
     Route: 048
  2. TRIOMUNE [Suspect]
     Indication: KAPOSI'S SARCOMA AIDS RELATED

REACTIONS (4)
  - DRUG RESISTANCE [None]
  - END STAGE AIDS [None]
  - HEPATITIS [None]
  - KAPOSI'S SARCOMA AIDS RELATED [None]
